FAERS Safety Report 15753780 (Version 1)
Quarter: 2018Q4

REPORT INFORMATION
  Report Type: Other
  Country: DE (occurrence: DE)
  Receive Date: 20181222
  Receipt Date: 20181222
  Transmission Date: 20190205
  Serious: Yes (Hospitalization, Other)
  Sender: FDA-Public Use
  Company Number: DE-MACLEODS PHARMACEUTICALS US LTD-MAC2018016414

PATIENT

DRUGS (5)
  1. CLOZAPINE. [Interacting]
     Active Substance: CLOZAPINE
     Indication: PRODUCT USED FOR UNKNOWN INDICATION
     Dosage: 300 MILLIGRAM, QD SINCE ONE MONTH
     Route: 048
  2. ARIPIPRAZOLE 30MG TABLET [Suspect]
     Active Substance: ARIPIPRAZOLE
     Indication: PRODUCT USED FOR UNKNOWN INDICATION
     Dosage: 30 MILLIGRAM, QD SINCE 2016
     Route: 048
     Dates: start: 2016
  3. DIPIPERON [Suspect]
     Active Substance: PIPAMPERONE
     Indication: PRODUCT USED FOR UNKNOWN INDICATION
     Dosage: 40 MILLIGRAM, QD
     Route: 048
     Dates: start: 2015
  4. PANTOZOL [Concomitant]
     Active Substance: PANTOPRAZOLE SODIUM
     Indication: PRODUCT USED FOR UNKNOWN INDICATION
     Dosage: 20 MILLIGRAM, QD SINCE 2015, ONGOING
     Route: 048
     Dates: start: 2015
  5. GASTROZEPIN [Suspect]
     Active Substance: PIRENZEPINE HYDROCHLORIDE
     Indication: PRODUCT USED FOR UNKNOWN INDICATION
     Dosage: 50 MILLIGRAM, QD
     Route: 048
     Dates: start: 2015

REACTIONS (15)
  - Generalised tonic-clonic seizure [Recovered/Resolved]
  - Eye movement disorder [Unknown]
  - Enuresis [Unknown]
  - Agitation [Unknown]
  - Unresponsive to stimuli [Unknown]
  - Condition aggravated [Unknown]
  - Schizophrenia [Unknown]
  - Unevaluable event [Unknown]
  - Automatism epileptic [Unknown]
  - Drug interaction [Recovered/Resolved]
  - Sleep deficit [Unknown]
  - Restlessness [Unknown]
  - Anxiety [Unknown]
  - Epilepsy [Recovered/Resolved]
  - Head injury [Unknown]

NARRATIVE: CASE EVENT DATE: 20171229
